FAERS Safety Report 14610165 (Version 1)
Quarter: 2018Q1

REPORT INFORMATION
  Report Type: Spontaneous
  Country: FR (occurrence: FR)
  Receive Date: 20180307
  Receipt Date: 20180307
  Transmission Date: 20180509
  Serious: Yes (Hospitalization, Other)
  Sender: FDA-Public Use
  Company Number: FR-LINDE-FR-LHC-2018055

PATIENT
  Age: 76 Year
  Sex: Male
  Weight: 63 kg

DRUGS (20)
  1. SPIRAMYCIN [Concomitant]
     Active Substance: SPIRAMYCIN
     Route: 048
  2. SPIRAMYCIN [Concomitant]
     Active Substance: SPIRAMYCIN
     Route: 042
  3. PARACETAMOL [Concomitant]
     Active Substance: ACETAMINOPHEN
     Route: 048
  4. TAREG (VALSARTAN) [Concomitant]
     Route: 048
  5. SODIUM CHLORIDE. [Concomitant]
     Active Substance: SODIUM CHLORIDE
     Route: 041
  6. CEFOTAXIME SODIUM [Concomitant]
     Active Substance: CEFOTAXIME SODIUM
     Route: 042
  7. CEFOTAMIME SODIUM [Concomitant]
     Route: 048
  8. PARACETAMOL [Concomitant]
     Active Substance: ACETAMINOPHEN
     Route: 048
  9. SPIRAMYCIN [Concomitant]
     Active Substance: SPIRAMYCIN
     Route: 048
  10. OXYGEN (GENERIC) [Suspect]
     Active Substance: OXYGEN
     Indication: PRODUCT USED FOR UNKNOWN INDICATION
     Route: 055
  11. LOVENOX [Suspect]
     Active Substance: ENOXAPARIN SODIUM
     Route: 058
  12. CEFOTAMIME SODIUM [Concomitant]
     Route: 048
  13. ELISOR (PRAVASTATIN SODIUM) [Concomitant]
     Route: 048
  14. SPIRAMYCIN [Concomitant]
     Active Substance: SPIRAMYCIN
     Route: 048
  15. SPIRAMYCIN [Concomitant]
     Active Substance: SPIRAMYCIN
     Route: 048
  16. BCG-MEDAC [Suspect]
     Active Substance: BACILLUS CALMETTE-GUERIN ANTIGEN, UNSPECIFIED SUBSTRAIN
     Route: 043
     Dates: start: 201708, end: 201708
  17. CEFOTAMIME SODIUM [Concomitant]
     Route: 048
  18. PARACETAMOL [Concomitant]
     Active Substance: ACETAMINOPHEN
     Route: 048
  19. PARACETAMOL [Concomitant]
     Active Substance: ACETAMINOPHEN
     Route: 048
  20. CEFOTAXIME SODIUM [Concomitant]
     Active Substance: CEFOTAXIME SODIUM
     Route: 048

REACTIONS (4)
  - Disseminated Bacillus Calmette-Guerin infection [Not Recovered/Not Resolved]
  - Pulmonary tuberculosis [Not Recovered/Not Resolved]
  - Granulomatous liver disease [Not Recovered/Not Resolved]
  - Pyrexia [Not Recovered/Not Resolved]

NARRATIVE: CASE EVENT DATE: 20180116
